FAERS Safety Report 25426098 (Version 2)
Quarter: 2025Q2

REPORT INFORMATION
  Report Type: Report from Study
  Country: US (occurrence: US)
  Receive Date: 20250612
  Receipt Date: 20250624
  Transmission Date: 20250717
  Serious: No
  Sender: ABBVIE
  Company Number: US-ABBVIE-6321309

PATIENT
  Age: 59 Year
  Sex: Female
  Weight: 98 kg

DRUGS (1)
  1. SKYRIZI [Suspect]
     Active Substance: RISANKIZUMAB-RZAA
     Indication: Psoriasis
     Route: 058
     Dates: start: 20241114

REACTIONS (3)
  - Stress [Unknown]
  - Psoriasis [Unknown]
  - Food allergy [Unknown]
